FAERS Safety Report 21688998 (Version 3)
Quarter: 2023Q1

REPORT INFORMATION
  Report Type: Report from Study
  Country: CN (occurrence: CN)
  Receive Date: 20221206
  Receipt Date: 20230217
  Transmission Date: 20230417
  Serious: Yes (Hospitalization)
  Sender: FDA-Public Use
  Company Number: CN-JNJFOC-20221106978

PATIENT
  Age: 84 Year
  Sex: Female
  Weight: 58 kg

DRUGS (9)
  1. TECLISTAMAB [Suspect]
     Active Substance: TECLISTAMAB
     Indication: Plasma cell myeloma refractory
     Dosage: DOSE 1; ?MEDICATION KIT NUMBER 709250
     Route: 058
     Dates: start: 20220310, end: 20221017
  2. TECLISTAMAB [Suspect]
     Active Substance: TECLISTAMAB
     Dosage: DOSE 2?C1D1
     Route: 058
     Dates: start: 20220314
  3. TECLISTAMAB [Suspect]
     Active Substance: TECLISTAMAB
     Dosage: C1D1
     Route: 058
     Dates: start: 20220314
  4. TECLISTAMAB [Suspect]
     Active Substance: TECLISTAMAB
     Dosage: C5D15
     Route: 058
     Dates: start: 20220317
  5. TECLISTAMAB [Suspect]
     Active Substance: TECLISTAMAB
     Dosage: MED. KIT NO.?709250
     Route: 058
     Dates: start: 20220310, end: 20221017
  6. VALACYCLOVIR HYDROCHLORIDE [Concomitant]
     Active Substance: VALACYCLOVIR HYDROCHLORIDE
     Indication: Prophylaxis
     Route: 048
     Dates: start: 20220310
  7. CYSTEINE HYDROCHLORIDE MONOHYDRATE;GLYCINE;GLYCYRRHIZIC ACID, AMMONIUM [Concomitant]
     Indication: Prophylaxis
     Route: 048
     Dates: start: 20220803
  8. ASPIRIN [Concomitant]
     Active Substance: ASPIRIN
     Indication: Cerebral infarction
  9. ATORVASTATIN CALCIUM [Concomitant]
     Active Substance: ATORVASTATIN CALCIUM
     Indication: Cerebral infarction

REACTIONS (3)
  - Urinary tract infection [Recovered/Resolved]
  - Upper respiratory tract infection [Recovered/Resolved]
  - Pneumonia [Unknown]

NARRATIVE: CASE EVENT DATE: 20221030
